FAERS Safety Report 10581711 (Version 1)
Quarter: 2014Q4

REPORT INFORMATION
  Report Type: Spontaneous
  Country: MY (occurrence: MY)
  Receive Date: 20141113
  Receipt Date: 20141113
  Transmission Date: 20150529
  Serious: Yes (Other)
  Sender: FDA-Public Use
  Company Number: PHHY2014MY147058

PATIENT
  Age: 24 Year
  Sex: Female

DRUGS (2)
  1. PHENYTOIN. [Concomitant]
     Active Substance: PHENYTOIN
     Indication: PRODUCT USED FOR UNKNOWN INDICATION
     Route: 065
  2. TEGRETOL [Suspect]
     Active Substance: CARBAMAZEPINE
     Indication: EPILEPSY
     Dosage: 800 MG, QD
     Route: 048

REACTIONS (1)
  - Neutropenic sepsis [Recovered/Resolved]

NARRATIVE: CASE EVENT DATE: 20130724
